FAERS Safety Report 4685783-8 (Version None)
Quarter: 2005Q2

REPORT INFORMATION
  Report Type: 
  Country: None (occurrence: None)
  Receive Date: 20050607
  Receipt Date: 20050607
  Transmission Date: 20051028
  Serious: No
  Sender: FDA-Public Use
  Company Number: None

PATIENT
  Age: 75 Year
  Sex: Female
  Weight: 58.9676 kg

DRUGS (1)
  1. CRESTOR [Suspect]
     Indication: BLOOD CHOLESTEROL
     Dosage: ORALLY-DAILY
     Route: 048
     Dates: start: 20030901, end: 20040101

REACTIONS (3)
  - ASTHENIA [None]
  - INSOMNIA [None]
  - PAIN [None]
